FAERS Safety Report 8960706 (Version 1)
Quarter: 2012Q4

REPORT INFORMATION
  Report Type: 
  Country: US (occurrence: US)
  Receive Date: 20121213
  Receipt Date: 20121213
  Transmission Date: 20130627
  Serious: Yes (Hospitalization, Other)
  Sender: FDA-Public Use
  Company Number: US-009507513-1008USA04173

PATIENT

DRUGS (2)
  1. FOSAMAX [Suspect]
     Indication: OSTEOPOROSIS PROPHYLAXIS
     Dosage: 70 mg, QW
     Route: 048
     Dates: start: 2003, end: 200805
  2. FOSAMAX [Suspect]
     Dosage: 70 mg, QM
     Route: 048
     Dates: start: 2003

REACTIONS (91)
  - Chronic obstructive pulmonary disease [Not Recovered/Not Resolved]
  - Renal failure [Unknown]
  - Carpal tunnel decompression [Unknown]
  - Carpal tunnel decompression [Unknown]
  - Surgery [Unknown]
  - Exploratory operation [Unknown]
  - Surgery [Unknown]
  - Uterine cancer [Unknown]
  - Skin cancer [Unknown]
  - Cellulitis [Unknown]
  - Appendicectomy [Unknown]
  - Asthenia [Unknown]
  - Osteonecrosis of jaw [Unknown]
  - Arthralgia [Unknown]
  - Bone loss [Unknown]
  - Cellulitis [Unknown]
  - Inappropriate schedule of drug administration [Unknown]
  - Tooth abscess [Unknown]
  - Fluid retention [Unknown]
  - Stomatitis [Recovering/Resolving]
  - Weight fluctuation [Recovered/Resolved]
  - Increased tendency to bruise [Not Recovered/Not Resolved]
  - Cough [Unknown]
  - Nervousness [Not Recovered/Not Resolved]
  - Depression [Unknown]
  - Rhinitis allergic [Unknown]
  - Aortic arteriosclerosis [Unknown]
  - Pulmonary mass [Unknown]
  - Hepatic steatosis [Unknown]
  - Infective exacerbation of chronic obstructive airways disease [Unknown]
  - Lung disorder [Unknown]
  - Insomnia [Not Recovered/Not Resolved]
  - Dry skin [Not Recovered/Not Resolved]
  - Hypoaesthesia [Unknown]
  - Paraesthesia [Unknown]
  - Oropharyngeal pain [Unknown]
  - Dyspnoea [Unknown]
  - Skin lesion [Unknown]
  - Abscess [Unknown]
  - Dermatitis [Unknown]
  - Fall [Unknown]
  - Transient ischaemic attack [Unknown]
  - Dyspnoea exertional [Not Recovered/Not Resolved]
  - Sleep apnoea syndrome [Unknown]
  - Hypoxia [Unknown]
  - Ear discomfort [Unknown]
  - Productive cough [Unknown]
  - Ear pain [Unknown]
  - Infective exacerbation of chronic obstructive airways disease [Unknown]
  - Arteriosclerosis [Unknown]
  - Bronchiectasis [Unknown]
  - Lung disorder [Unknown]
  - Adverse drug reaction [Unknown]
  - Fall [Unknown]
  - Fatigue [Unknown]
  - Burning sensation [Unknown]
  - Restless legs syndrome [Unknown]
  - Peripheral nerve lesion [Unknown]
  - Arteriosclerosis coronary artery [Unknown]
  - Dry mouth [Unknown]
  - Diverticulum [Unknown]
  - Hyperlipidaemia [Unknown]
  - Osteoarthritis [Unknown]
  - Breast discomfort [Unknown]
  - Carotid artery stenosis [Unknown]
  - Blood glucose abnormal [Unknown]
  - Visual impairment [Unknown]
  - Carotid artery occlusion [Unknown]
  - Abscess limb [Unknown]
  - Fall [Unknown]
  - Compression fracture [Unknown]
  - Cardiac failure congestive [Unknown]
  - Hyperthyroidism [Unknown]
  - Intervertebral disc degeneration [Unknown]
  - Musculoskeletal stiffness [Unknown]
  - Sleep disorder [Unknown]
  - Oedema [Unknown]
  - Joint range of motion decreased [Unknown]
  - Asthenia [Unknown]
  - Oedema peripheral [Unknown]
  - Headache [Recovered/Resolved]
  - Back pain [Not Recovered/Not Resolved]
  - Myalgia [Not Recovered/Not Resolved]
  - Arthralgia [Not Recovered/Not Resolved]
  - Rash [Unknown]
  - Oedema peripheral [Not Recovered/Not Resolved]
  - Oedema peripheral [Unknown]
  - Pruritus [Unknown]
  - Pain in jaw [Unknown]
  - Abdominal discomfort [Unknown]
  - Gastrooesophageal reflux disease [Unknown]
